FAERS Safety Report 14907017 (Version 1)
Quarter: 2018Q2

REPORT INFORMATION
  Report Type: Spontaneous
  Country: US (occurrence: US)
  Receive Date: 20180517
  Receipt Date: 20180517
  Transmission Date: 20180711
  Serious: No
  Sender: FDA-Public Use
  Company Number: US-HORIZON-PEN-0364-2018

PATIENT
  Age: 55 Year
  Sex: Female

DRUGS (4)
  1. PENNSAID [Suspect]
     Active Substance: DICLOFENAC SODIUM
     Indication: PRODUCT USED FOR UNKNOWN INDICATION
     Dates: start: 20180501, end: 20180501
  2. LINCEF [Concomitant]
  3. DEXILANT [Concomitant]
     Active Substance: DEXLANSOPRAZOLE
  4. SURFAK [Concomitant]

REACTIONS (3)
  - Urticaria [Unknown]
  - Contraindicated product administered [Unknown]
  - Erythema [Unknown]

NARRATIVE: CASE EVENT DATE: 20180501
